FAERS Safety Report 4263793-2 (Version None)
Quarter: 2004Q1

REPORT INFORMATION
  Report Type: 
  Country: None (occurrence: None)
  Receive Date: 20040102
  Receipt Date: 20031218
  Transmission Date: 20041129
  Serious: Yes (Hospitalization)
  Sender: FDA-Public Use
  Company Number: USA030125397

PATIENT
  Age: 71 Year
  Sex: Female
  Weight: 82 kg

DRUGS (5)
  1. HUMALOG MIX 75/25 [Suspect]
     Indication: DIABETES MELLITUS
     Dosage: 55 U/DAY
  2. HUMULIN 70/30 [Suspect]
     Indication: DIABETES MELLITUS
  3. HUMULIN R [Suspect]
  4. VAGIFEM [Concomitant]
  5. TOPROL-XL [Concomitant]

REACTIONS (15)
  - ABDOMINAL PANNICULECTOMY [None]
  - ASTHENIA [None]
  - BLOOD GLUCOSE DECREASED [None]
  - BLOOD GLUCOSE INCREASED [None]
  - BLOOD PRESSURE ABNORMAL [None]
  - BLOOD PRESSURE INCREASED [None]
  - COLON OPERATION [None]
  - DRUG INEFFECTIVE [None]
  - DYSPEPSIA [None]
  - GALLBLADDER OPERATION [None]
  - HUNGER [None]
  - IMPAIRED HEALING [None]
  - IRRITABLE BOWEL SYNDROME [None]
  - MASS [None]
  - PAIN [None]
